FAERS Safety Report 22945288 (Version 4)
Quarter: 2024Q1

REPORT INFORMATION
  Report Type: Spontaneous
  Country: US (occurrence: US)
  Receive Date: 20230914
  Receipt Date: 20240313
  Transmission Date: 20240410
  Serious: No
  Sender: FDA-Public Use
  Company Number: US-Calliditas-2023CAL01177

PATIENT
  Age: 52 Year
  Sex: Female
  Weight: 60.8 kg

DRUGS (1)
  1. TARPEYO [Suspect]
     Active Substance: BUDESONIDE
     Indication: Haematuria
     Dosage: 16 MG (4 CAPSULES) ONCE DAILY
     Route: 048
     Dates: start: 20230712

REACTIONS (12)
  - Weight increased [Not Recovered/Not Resolved]
  - Swelling face [Unknown]
  - Menstrual disorder [Unknown]
  - Menopause [Unknown]
  - Blood iron decreased [Unknown]
  - Oedema [Not Recovered/Not Resolved]
  - Joint swelling [Not Recovered/Not Resolved]
  - Rash [Recovered/Resolved]
  - Biopsy breast [Unknown]
  - Drug ineffective [Not Recovered/Not Resolved]
  - Proteinuria [Not Recovered/Not Resolved]
  - Hypertension [Not Recovered/Not Resolved]

NARRATIVE: CASE EVENT DATE: 20231001
